FAERS Safety Report 20910827 (Version 1)
Quarter: 2022Q2

REPORT INFORMATION
  Report Type: Spontaneous
  Country: GB (occurrence: None)
  Receive Date: 20220603
  Receipt Date: 20220603
  Transmission Date: 20220720
  Serious: Yes (Other)
  Sender: FDA-Public Use
  Company Number: 2022A201640

PATIENT
  Sex: Female
  Weight: 76 kg

DRUGS (3)
  1. CRESTOR [Suspect]
     Active Substance: ROSUVASTATIN CALCIUM
     Dosage: 2.5 ONCE A DAY NIGHT
     Route: 048
     Dates: start: 20220407, end: 20220525
  2. LORATADINE [Concomitant]
     Active Substance: LORATADINE
     Indication: Adverse drug reaction
  3. MIRENA [Concomitant]
     Active Substance: LEVONORGESTREL

REACTIONS (6)
  - Vomiting [Recovered/Resolved]
  - Fatigue [Recovering/Resolving]
  - Depression [Recovering/Resolving]
  - Dizziness [Recovering/Resolving]
  - Nausea [Recovering/Resolving]
  - Headache [Recovering/Resolving]

NARRATIVE: CASE EVENT DATE: 20220408
